FAERS Safety Report 8021041-1 (Version None)
Quarter: 2011Q4

REPORT INFORMATION
  Report Type: 
  Country: None (occurrence: None)
  Receive Date: 20111229
  Receipt Date: 20111229
  Transmission Date: 20120403
  Serious: Yes (Other)
  Sender: FDA-Public Use
  Company Number: None

PATIENT
  Sex: Female
  Weight: 55.3388 kg

DRUGS (1)
  1. BENTYL [Suspect]
     Indication: IRRITABLE BOWEL SYNDROME
     Dosage: 1 CAPSULE 4 X DAY
     Dates: start: 20111104, end: 20111221

REACTIONS (3)
  - DRUG HYPERSENSITIVITY [None]
  - VISION BLURRED [None]
  - DIZZINESS [None]
